FAERS Safety Report 21421546 (Version 1)
Quarter: 2022Q4

REPORT INFORMATION
  Report Type: Spontaneous
  Country: US (occurrence: US)
  Receive Date: 20221007
  Receipt Date: 20221007
  Transmission Date: 20230113
  Serious: Yes (Death, Hospitalization)
  Sender: FDA-Public Use
  Company Number: US-ELI_LILLY_AND_COMPANY-US202210000668

PATIENT
  Age: 82 Year
  Sex: Female

DRUGS (2)
  1. BEBTELOVIMAB [Suspect]
     Active Substance: BEBTELOVIMAB
     Indication: COVID-19
     Dosage: UNK, SINGLE
     Route: 065
     Dates: start: 20220819, end: 20220819
  2. ELIQUIS [Concomitant]
     Active Substance: APIXABAN

REACTIONS (7)
  - COVID-19 [Fatal]
  - Lung disorder [Fatal]
  - Respiratory distress [Unknown]
  - Dyspnoea [Unknown]
  - Bronchitis [Unknown]
  - Productive cough [Unknown]
  - Haemoptysis [Unknown]
